FAERS Safety Report 9681172 (Version 1)
Quarter: 2013Q4

REPORT INFORMATION
  Report Type: Spontaneous
  Country: ES (occurrence: ES)
  Receive Date: 20131111
  Receipt Date: 20131111
  Transmission Date: 20140711
  Serious: Yes (Hospitalization)
  Sender: FDA-Public Use
  Company Number: ES-PERRIGO-13ES011288

PATIENT
  Age: 75 Year
  Sex: Male
  Weight: 85 kg

DRUGS (1)
  1. COLISTIMETHATE SODIUM RX 150 MG/VIAL 7N5 [Suspect]
     Indication: PSEUDOMONAS INFECTION
     Dosage: 160 MG, Q8H
     Route: 042

REACTIONS (9)
  - Respiratory failure [Unknown]
  - Neurotoxicity [Unknown]
  - Respiratory paralysis [Unknown]
  - Dyspnoea [Unknown]
  - Tachypnoea [Unknown]
  - Diplegia [Unknown]
  - Asthenia [Unknown]
  - Hypocalcaemia [Unknown]
  - Apnoea [Unknown]
